FAERS Safety Report 9303726 (Version 1)
Quarter: 2013Q2

REPORT INFORMATION
  Report Type: Spontaneous
  Country: US (occurrence: US)
  Receive Date: 20130522
  Receipt Date: 20130522
  Transmission Date: 20140414
  Serious: Yes (Hospitalization)
  Sender: FDA-Public Use
  Company Number: US-GLAXOSMITHKLINE-A0791311A

PATIENT
  Age: 48 Year
  Sex: Female
  Weight: 146.8 kg

DRUGS (2)
  1. AVANDIA [Suspect]
     Indication: DIABETES MELLITUS
     Route: 048
     Dates: start: 199912, end: 200705
  2. AVANDAMET [Suspect]
     Indication: DIABETES MELLITUS
     Route: 048

REACTIONS (5)
  - Brain stem stroke [Unknown]
  - Dyspnoea [Unknown]
  - Gait disturbance [Unknown]
  - Dysstasia [Unknown]
  - Joint swelling [Unknown]
